FAERS Safety Report 5247908-5 (Version None)
Quarter: 2007Q1

REPORT INFORMATION
  Report Type: 
  Country: None (occurrence: None)
  Receive Date: 20070227
  Receipt Date: 20070215
  Transmission Date: 20070707
  Serious: Yes (Other)
  Sender: FDA-Public Use
  Company Number: GB-ROCHE-483656

PATIENT
  Age: 56 Year
  Sex: Female
  Weight: 94 kg

DRUGS (4)
  1. XENICAL [Suspect]
     Indication: OBESITY
     Route: 048
     Dates: start: 20060507, end: 20070128
  2. WARFARIN SODIUM [Concomitant]
     Indication: COAGULOPATHY
     Route: 048
     Dates: start: 20060815
  3. SIMVASTATIN [Concomitant]
     Route: 048
  4. 1 CONCOMITANT DRUG [Concomitant]
     Indication: BLOOD PRESSURE
     Route: 048

REACTIONS (1)
  - INTERNATIONAL NORMALISED RATIO DECREASED [None]
